FAERS Safety Report 4777340-X (Version None)
Quarter: 2005Q3

REPORT INFORMATION
  Report Type: 
  Country: None (occurrence: None)
  Receive Date: 20050915
  Receipt Date: 20050902
  Transmission Date: 20060218
  Serious: Yes (Disabling, Other)
  Sender: FDA-Public Use
  Company Number: 2005099149

PATIENT
  Age: 72 Year
  Sex: Female
  Weight: 48.0813 kg

DRUGS (6)
  1. LIPITOR [Suspect]
     Indication: BLOOD CHOLESTEROL INCREASED
     Dosage: 10 MG (10 MG, 1 IN 1 D), ORAL
     Route: 048
     Dates: end: 20000507
  2. LEVOTHYROXINE SODIUM [Concomitant]
  3. CLARITIN [Concomitant]
  4. ACETYLSALICYLIC ACID SRT [Concomitant]
  5. PEPCID [Concomitant]
  6. ESTRATEST [Concomitant]

REACTIONS (22)
  - ASTHENIA [None]
  - BALANCE DISORDER [None]
  - CEREBROVASCULAR ACCIDENT [None]
  - COLITIS COLLAGENOUS [None]
  - CORONARY ARTERY SURGERY [None]
  - DECREASED APPETITE [None]
  - DEMENTIA [None]
  - DEPRESSION [None]
  - DIFFICULTY IN WALKING [None]
  - DIZZINESS [None]
  - DYSSTASIA [None]
  - FEELING ABNORMAL [None]
  - MENIERE'S DISEASE [None]
  - MOVEMENT DISORDER [None]
  - MUSCLE SPASMS [None]
  - MUSCULAR WEAKNESS [None]
  - PAIN [None]
  - PYREXIA [None]
  - TENSION [None]
  - TINNITUS [None]
  - TREMOR [None]
  - VISION BLURRED [None]
